FAERS Safety Report 23839539 (Version 2)
Quarter: 2024Q2

REPORT INFORMATION
  Report Type: Report from Study
  Country: MY (occurrence: MY)
  Receive Date: 20240510
  Receipt Date: 20240516
  Transmission Date: 20240716
  Serious: Yes (Death, Other)
  Sender: FDA-Public Use
  Company Number: MY-SUN PHARMACEUTICAL INDUSTRIES LTD-2023R1-445354

PATIENT
  Age: 59 Year
  Sex: Male
  Weight: 73.5 kg

DRUGS (5)
  1. OXALIPLATIN [Suspect]
     Active Substance: OXALIPLATIN
     Indication: Oesophageal adenocarcinoma
     Dosage: 130 MILLIGRAM/SQ. METER Q3W
     Route: 042
     Dates: start: 20231004
  2. CAPECITABINE [Suspect]
     Active Substance: CAPECITABINE
     Indication: Oesophageal adenocarcinoma
     Dosage: 1000 MILLIGRAM/SQ. METER, D1-D14
     Route: 048
     Dates: start: 20231004, end: 20231108
  3. TISLELIZUMAB [Suspect]
     Active Substance: TISLELIZUMAB
     Indication: Oesophageal adenocarcinoma
     Dosage: 200 MILLIGRAM, Q3W
     Route: 042
     Dates: start: 20231004
  4. ZANIDATAMAB [Suspect]
     Active Substance: ZANIDATAMAB
     Indication: Oesophageal adenocarcinoma
     Dosage: 2400 MILLIGRAM, Q3W
     Route: 042
     Dates: start: 20231004
  5. CARBOXYMETHYLCELLULOSE SODIUM [Concomitant]
     Active Substance: CARBOXYMETHYLCELLULOSE SODIUM
     Indication: Dry eye
     Dosage: UNK
     Route: 065
     Dates: start: 20231025

REACTIONS (2)
  - Hypokalaemia [Fatal]
  - Diarrhoea [Fatal]

NARRATIVE: CASE EVENT DATE: 20231112
